FAERS Safety Report 20015936 (Version 1)
Quarter: 2021Q4

REPORT INFORMATION
  Report Type: Spontaneous
  Country: US (occurrence: None)
  Receive Date: 20211101
  Receipt Date: 20211101
  Transmission Date: 20220303
  Serious: No
  Sender: FDA-Public Use
  Company Number: None

PATIENT
  Age: 75 Year
  Sex: Female

DRUGS (1)
  1. CAPECITABINE [Suspect]
     Active Substance: CAPECITABINE
     Dosage: FREQUENCY : TWICE A DAY;?
     Route: 048
     Dates: start: 202011

REACTIONS (7)
  - Off label use [None]
  - Thyroid disorder [None]
  - Endocrine disorder [None]
  - Tumour marker increased [None]
  - Erythema [None]
  - Dry skin [None]
  - Rash macular [None]

NARRATIVE: CASE EVENT DATE: 20211101
